FAERS Safety Report 6682005-3 (Version None)
Quarter: 2010Q2

REPORT INFORMATION
  Report Type: 
  Country: None (occurrence: None)
  Receive Date: 20100414
  Receipt Date: 20100414
  Transmission Date: 20101027
  Serious: Yes (Other)
  Sender: FDA-Public Use
  Company Number: None

PATIENT
  Sex: Female
  Weight: 80.7403 kg

DRUGS (2)
  1. PROZAC [Suspect]
     Indication: MAJOR DEPRESSION
     Dosage: 20 - 60 MG DAILY PO 1990'S - 2008
     Route: 048
     Dates: end: 20080101
  2. LEXAPRO [Suspect]
     Indication: MAJOR DEPRESSION
     Dosage: 20 MG DAILY PO 2009 (MAR) - 210 (MAR)
     Route: 048
     Dates: start: 20090301

REACTIONS (2)
  - CHRONIC FATIGUE SYNDROME [None]
  - FIBROMYALGIA [None]
